FAERS Safety Report 9891662 (Version 1)
Quarter: 2014Q1

REPORT INFORMATION
  Report Type: Spontaneous
  Country: US (occurrence: None)
  Receive Date: 20140211
  Receipt Date: 20140211
  Transmission Date: 20141002
  Serious: Yes (Hospitalization)
  Sender: FDA-Public Use
  Company Number: None

PATIENT
  Age: 74 Year
  Sex: Male

DRUGS (8)
  1. METOPROLOL [Suspect]
     Indication: ATRIAL FIBRILLATION
     Route: 048
  2. METOPROLOL [Suspect]
     Indication: HYPERTENSION
     Route: 048
  3. ALLOPURINOL [Concomitant]
  4. AMLODIPINE [Concomitant]
  5. BENAZEPRIL [Concomitant]
  6. LOTRISONE [Concomitant]
  7. PRADAXA [Concomitant]
  8. FUROSEMIDE [Concomitant]

REACTIONS (4)
  - Bradycardia [None]
  - Syncope [None]
  - Mental status changes [None]
  - Fall [None]
